FAERS Safety Report 10879825 (Version 3)
Quarter: 2015Q2

REPORT INFORMATION
  Report Type: Spontaneous
  Country: US (occurrence: US)
  Receive Date: 20150302
  Receipt Date: 20150421
  Transmission Date: 20150821
  Serious: No
  Sender: FDA-Public Use
  Company Number: US-PFIZER INC-2015066984

PATIENT
  Age: 36 Year
  Sex: Female

DRUGS (1)
  1. GABAPENTIN. [Suspect]
     Active Substance: GABAPENTIN
     Indication: NEUROPATHY PERIPHERAL
     Dosage: 200 MG, 3X/DAY

REACTIONS (1)
  - Fibromyalgia [Not Recovered/Not Resolved]

NARRATIVE: CASE EVENT DATE: 2013
